FAERS Safety Report 17759532 (Version 2)
Quarter: 2020Q2

REPORT INFORMATION
  Report Type: Report from Study
  Country: GB (occurrence: GB)
  Receive Date: 20200508
  Receipt Date: 20200603
  Transmission Date: 20200714
  Serious: Yes (Other)
  Sender: FDA-Public Use
  Company Number: NVSC2020GB096934

PATIENT
  Sex: Female

DRUGS (4)
  1. PREDNISOLONE. [Concomitant]
     Active Substance: PREDNISOLONE
     Indication: PRODUCT USED FOR UNKNOWN INDICATION
     Dosage: 5 MG, QD
     Route: 065
  2. HYRIMOZ [Suspect]
     Active Substance: ADALIMUMAB-ADAZ
     Indication: RHEUMATOID ARTHRITIS
     Dosage: 1 DF (40 MG/0.8 ML), Q2W
     Route: 058
     Dates: start: 20200227
  3. METHOTREXATE. [Concomitant]
     Active Substance: METHOTREXATE
     Indication: PRODUCT USED FOR UNKNOWN INDICATION
     Dosage: UNK
     Route: 065
  4. PREDNISONE. [Concomitant]
     Active Substance: PREDNISONE
     Indication: PRODUCT USED FOR UNKNOWN INDICATION
     Dosage: UNK
     Route: 065

REACTIONS (21)
  - Swelling of eyelid [Unknown]
  - Weight increased [Unknown]
  - Blood pressure diastolic decreased [Not Recovered/Not Resolved]
  - Eczema [Not Recovered/Not Resolved]
  - Dizziness [Not Recovered/Not Resolved]
  - Headache [Not Recovered/Not Resolved]
  - Blood pressure systolic increased [Not Recovered/Not Resolved]
  - Eye pruritus [Unknown]
  - Vision blurred [Unknown]
  - Dyspnoea [Not Recovered/Not Resolved]
  - Dyspepsia [Not Recovered/Not Resolved]
  - Heart rate increased [Unknown]
  - Palpitations [Unknown]
  - Fatigue [Unknown]
  - Blood glucose increased [Unknown]
  - Chest pain [Unknown]
  - Hypertension [Unknown]
  - Hyperaesthesia teeth [Not Recovered/Not Resolved]
  - Gait disturbance [Not Recovered/Not Resolved]
  - Toothache [Not Recovered/Not Resolved]
  - Eye pain [Unknown]
